FAERS Safety Report 7998738-2 (Version None)
Quarter: 2011Q4

REPORT INFORMATION
  Report Type: 
  Country: None (occurrence: None)
  Receive Date: 20111221
  Receipt Date: 20111216
  Transmission Date: 20120403
  Serious: Yes (Other)
  Sender: FDA-Public Use
  Company Number: US-ABBOTT-11P-163-0867204-00

PATIENT
  Sex: Female
  Weight: 43 kg

DRUGS (3)
  1. OMNITROPE [Concomitant]
     Indication: PRODUCT USED FOR UNKNOWN INDICATION
  2. LUPRON DEPOT [Suspect]
     Indication: PRECOCIOUS PUBERTY
     Dates: start: 20101124, end: 20111010
  3. GROWTH HORMONES [Concomitant]
     Indication: PRECOCIOUS PUBERTY
     Route: 050

REACTIONS (7)
  - WOUND [None]
  - INJECTION SITE INDURATION [None]
  - FAT NECROSIS [None]
  - INJECTION SITE DISCHARGE [None]
  - IMPAIRED HEALING [None]
  - INJECTION SITE ABSCESS [None]
  - INJECTION SITE ERYTHEMA [None]
